FAERS Safety Report 6742772-7 (Version None)
Quarter: 2010Q2

REPORT INFORMATION
  Report Type: 
  Country: None (occurrence: None)
  Receive Date: 20100525
  Receipt Date: 20100511
  Transmission Date: 20101027
  Serious: Yes (Hospitalization)
  Sender: FDA-Public Use
  Company Number: UTC-001083

PATIENT
  Age: 46 Year
  Sex: Female
  Weight: 58.6 kg

DRUGS (4)
  1. TYVASO [Suspect]
     Indication: PULMONARY ARTERIAL HYPERTENSION
     Dosage: 168 MCG, 1 D, INHALATION
     Route: 055
     Dates: start: 20100428, end: 20100506
  2. TRACLEER [Concomitant]
  3. POTASSIUM CHLORIDE [Concomitant]
  4. PROZAC [Concomitant]

REACTIONS (9)
  - CONVULSION [None]
  - DRUG HYPERSENSITIVITY [None]
  - HEADACHE [None]
  - HEART RATE INCREASED [None]
  - NAUSEA [None]
  - OROPHARYNGEAL PAIN [None]
  - SWELLING FACE [None]
  - SYNCOPE [None]
  - VOMITING [None]
